FAERS Safety Report 12073386 (Version 1)
Quarter: 2016Q1

REPORT INFORMATION
  Report Type: Other
  Country: DE (occurrence: DE)
  Receive Date: 20160212
  Receipt Date: 20160212
  Transmission Date: 20160526
  Serious: Yes (Other)
  Sender: FDA-Public Use
  Company Number: DE-MYLANLABS-2016M1005095

PATIENT

DRUGS (1)
  1. LEVOFLOXACIN DURA 500 MG FILMTABLETTEN [Suspect]
     Active Substance: LEVOFLOXACIN
     Dosage: UNK

REACTIONS (4)
  - Inflammation [Unknown]
  - Pain in extremity [Unknown]
  - Muscle rupture [Unknown]
  - Tendon rupture [Unknown]
